FAERS Safety Report 8148492 (Version 4)
Quarter: 2018Q1

REPORT INFORMATION
  Report Type: Report from Study
  Country: US (occurrence: US)
  Receive Date: 20110922
  Receipt Date: 20180103
  Transmission Date: 20180509
  Serious: Yes (Hospitalization, Other)
  Sender: FDA-Public Use
  Company Number: US-ACTELION-A-NJ2010-36441

PATIENT
  Age: 36 Year
  Sex: Female

DRUGS (6)
  1. TRACLEER [Suspect]
     Active Substance: BOSENTAN
     Dosage: 125 MG, BID
     Route: 048
     Dates: start: 2000
  2. REMODULIN [Concomitant]
     Active Substance: TREPROSTINIL
     Dosage: UNK
     Dates: start: 2012
  3. TRACLEER [Suspect]
     Active Substance: BOSENTAN
     Indication: PULMONARY ARTERIAL HYPERTENSION
     Dosage: 125 MG, BID
     Route: 048
     Dates: start: 20020514
  4. TRACLEER [Suspect]
     Active Substance: BOSENTAN
     Dosage: 62.5 MG, BID
     Route: 048
     Dates: start: 20020406, end: 20020513
  5. PRADAXA [Suspect]
     Active Substance: DABIGATRAN ETEXILATE MESYLATE
     Indication: PRODUCT USED FOR UNKNOWN INDICATION
     Dosage: 150 MG, BID
     Route: 048
  6. SILDENAFIL. [Concomitant]
     Active Substance: SILDENAFIL
     Dosage: 40 MG, BID
     Route: 048
     Dates: start: 2012

REACTIONS (15)
  - Abdominal distension [Not Recovered/Not Resolved]
  - Bronchitis [Unknown]
  - Cardiomegaly [Unknown]
  - Abdominal pain [Recovered/Resolved]
  - Heart valve incompetence [Not Recovered/Not Resolved]
  - Oedema peripheral [Recovering/Resolving]
  - Ascites [Unknown]
  - Cardiac failure congestive [Recovering/Resolving]
  - Right ventricular failure [Not Recovered/Not Resolved]
  - Hepatomegaly [Not Recovered/Not Resolved]
  - Depressed mood [Unknown]
  - Catheter site haemorrhage [Recovered/Resolved]
  - Pulmonary hypertension [Unknown]
  - Haemoptysis [Recovering/Resolving]
  - Alopecia [Unknown]

NARRATIVE: CASE EVENT DATE: 2009
